FAERS Safety Report 7776400-9 (Version None)
Quarter: 2011Q3

REPORT INFORMATION
  Report Type: 
  Country: None (occurrence: None)
  Receive Date: 20110926
  Receipt Date: 20110920
  Transmission Date: 20111222
  Serious: Yes (Death, Hospitalization, Disabling, Other)
  Sender: FDA-Public Use
  Company Number: US-PFIZER INC-HQWYE078326OCT04

PATIENT
  Sex: Female
  Weight: 82 kg

DRUGS (5)
  1. NORVASC [Concomitant]
     Indication: HYPERTENSION
     Dosage: UNK
     Dates: start: 19960101
  2. MEDROXYPROGESTERONE ACETATE [Suspect]
     Indication: HORMONE REPLACEMENT THERAPY
     Dosage: UNK
     Route: 048
  3. PREDNISONE [Concomitant]
     Indication: RENAL DISORDER
     Dosage: UNK
     Dates: start: 19960101
  4. CLONIDINE [Concomitant]
     Indication: HYPERTENSION
     Dosage: UNK
     Dates: start: 19960101
  5. PREMPRO [Suspect]
     Indication: HORMONE REPLACEMENT THERAPY
     Dosage: 0.625/2.5MG
     Route: 048
     Dates: start: 19960301, end: 19990501

REACTIONS (1)
  - BREAST CANCER METASTATIC [None]
